FAERS Safety Report 6472334-0 (Version None)
Quarter: 2009Q4

REPORT INFORMATION
  Report Type: 
  Country: None (occurrence: None)
  Receive Date: 20091201
  Receipt Date: 20091113
  Transmission Date: 20100525
  Serious: Yes (Disabling)
  Sender: FDA-Public Use
  Company Number: 2009-026A

PATIENT
  Sex: 0

DRUGS (2)
  1. DUREZOL [Suspect]
     Indication: POST PROCEDURAL COMPLICATION
     Dosage: QID
  2. DUREZOL [Suspect]
     Indication: PROCEDURAL PAIN
     Dosage: QID

REACTIONS (3)
  - ENDOPHTHALMITIS [None]
  - EYE EXCISION [None]
  - SUTURE RELATED COMPLICATION [None]
